FAERS Safety Report 14978502 (Version 2)
Quarter: 2018Q3

REPORT INFORMATION
  Report Type: Spontaneous
  Country: US (occurrence: US)
  Receive Date: 20180606
  Receipt Date: 20180704
  Transmission Date: 20181010
  Serious: No
  Sender: FDA-Public Use
  Company Number: US-GLAXOSMITHKLINE-US2018097107

PATIENT
  Age: 65 Year
  Sex: Female

DRUGS (1)
  1. TRANSDERM SCOP [Suspect]
     Active Substance: SCOPOLAMINE
     Indication: RHINORRHOEA
     Dosage: UNK
     Dates: end: 20180301

REACTIONS (5)
  - Product quality issue [Recovered/Resolved]
  - Application site pruritus [Recovered/Resolved]
  - Wrong technique in product usage process [Recovered/Resolved]
  - Application site reaction [Recovered/Resolved]
  - Off label use [Recovered/Resolved]
